FAERS Safety Report 13073101 (Version 1)
Quarter: 2016Q4

REPORT INFORMATION
  Report Type: Spontaneous
  Country: US (occurrence: US)
  Receive Date: 20161229
  Receipt Date: 20161229
  Transmission Date: 20170207
  Serious: No
  Sender: FDA-Public Use
  Company Number: US-BAYER-2016-239408

PATIENT
  Age: 2 Year
  Sex: Female

DRUGS (1)
  1. MIRALAX [Suspect]
     Active Substance: POLYETHYLENE GLYCOL 3350
     Route: 048

REACTIONS (6)
  - Drug administered to patient of inappropriate age [Unknown]
  - Prescribed underdose [Unknown]
  - Screaming [Unknown]
  - Product use issue [Unknown]
  - Muscle spasms [Unknown]
  - Drug ineffective [Unknown]
